FAERS Safety Report 7426427-1 (Version None)
Quarter: 2011Q2

REPORT INFORMATION
  Report Type: 
  Country: None (occurrence: None)
  Receive Date: 20110420
  Receipt Date: 20110411
  Transmission Date: 20111010
  Serious: Yes (Other)
  Sender: FDA-Public Use
  Company Number: BR-ROCHE-745784

PATIENT
  Sex: Female
  Weight: 67 kg

DRUGS (23)
  1. TOCILIZUMAB [Interacting]
     Route: 042
  2. ANAESTHETIC [Interacting]
     Route: 065
     Dates: start: 20101127, end: 20101127
  3. NISULID [Concomitant]
     Dosage: NIMESULIDE 50 MG,MAGISTRAL FORMULA
  4. NISULID [Concomitant]
  5. PREDNISONE [Concomitant]
     Dosage: PREDNISONE 1.5 MG, MAGISTRAL FORMULA
  6. ARAVA [Concomitant]
     Dates: start: 20110322
  7. DIACEREIN [Concomitant]
     Dosage: DIACEREIN 30 MG, MAGISTRAL FORMULA
  8. TOCILIZUMAB [Interacting]
     Route: 042
  9. FAMOTIDINE [Concomitant]
     Dosage: FAMOTIDINE 20 MG, MAGISTRAL FORMULA
  10. PREDNISONE [Concomitant]
     Dosage: DOSE REPORTED AS 4.5MG AND 10 MG
  11. TOCILIZUMAB [Interacting]
     Indication: RHEUMATOID ARTHRITIS
     Dosage: ROUTE: ENDOVENOUS; FORM: INFUSION; DOSE: 500MG/INFUSION
     Route: 042
     Dates: start: 20091117
  12. MODURETIC 5-50 [Concomitant]
  13. LYRICA [Concomitant]
  14. PREDNISONE [Concomitant]
  15. PREDNISONE [Concomitant]
  16. ACETAMINOPHEN [Concomitant]
     Dosage: ACETAMINOPHEN 400 MG, MAGISTRAL FORMULA
  17. FOLIC ACID [Concomitant]
     Dosage: FOLIC ACID 0.5 MG, MAGISTRAL FORMULA
  18. FOLIC ACID [Concomitant]
  19. NISULID [Concomitant]
  20. TOCILIZUMAB [Interacting]
     Route: 042
     Dates: end: 20101222
  21. RITUXIMAB [Suspect]
     Indication: RHEUMATOID ARTHRITIS
     Dosage: DOSE, ROUTE AND FREQUENCY NOT REPORTED.
     Route: 065
     Dates: start: 20110406
  22. EUTHYROX [Concomitant]
     Indication: HYPOTHYROIDISM
     Dosage: START: MORE THAN 20 YEAR AGO
  23. EUTHYROX [Concomitant]

REACTIONS (29)
  - PHARYNGITIS [None]
  - CANDIDIASIS [None]
  - URTICARIA [None]
  - RASH [None]
  - TACHYCARDIA [None]
  - EXTRAPYRAMIDAL DISORDER [None]
  - FATIGUE [None]
  - JOINT SWELLING [None]
  - NODULE [None]
  - DEPRESSION [None]
  - DIZZINESS [None]
  - MUSCULAR WEAKNESS [None]
  - DRUG INTERACTION [None]
  - PARAESTHESIA [None]
  - HYPOTHERMIA [None]
  - SWELLING [None]
  - NEPHROLITHIASIS [None]
  - HEADACHE [None]
  - HYPERSENSITIVITY [None]
  - ARTHRALGIA [None]
  - BONE PAIN [None]
  - EYE DISORDER [None]
  - MALAISE [None]
  - PAIN [None]
  - INSOMNIA [None]
  - NAUSEA [None]
  - DRUG INEFFECTIVE [None]
  - URINARY TRACT INFECTION [None]
  - DYSPNOEA [None]
